FAERS Safety Report 9214090 (Version 1)
Quarter: 2013Q2

REPORT INFORMATION
  Report Type: Spontaneous
  Country: US (occurrence: None)
  Receive Date: 20130404
  Receipt Date: 20130404
  Transmission Date: 20140414
  Serious: No
  Sender: FDA-Public Use
  Company Number: None

PATIENT
  Age: 16 Year
  Sex: Female
  Weight: 79.5 kg

DRUGS (1)
  1. RISPERAL CONSTA [Suspect]
     Dosage: RISPERAL 1MG BID ORAL
     Route: 048
     Dates: start: 20130317, end: 20130318

REACTIONS (1)
  - Dyspnoea [None]
